FAERS Safety Report 5957530-0 (Version None)
Quarter: 2008Q4

REPORT INFORMATION
  Report Type: 
  Country: None (occurrence: None)
  Receive Date: 20081112
  Receipt Date: 20081028
  Transmission Date: 20090506
  Serious: Yes (Congenital Anomaly)
  Sender: FDA-Public Use
  Company Number: B0545198A

PATIENT
  Sex: Female

DRUGS (3)
  1. PROPRANOLOL HCL [Suspect]
     Dosage: 30 MG, PER DAY, TRANSPLACENTARY
     Route: 064
  2. CARBIMAZOLE (FORMULATION UNKNOWN) (CARBIMAZOLE) [Suspect]
     Dosage: 40 MG, PER DAY, TRANSPLACENTARY
     Route: 064
  3. METHYLDOPA [Suspect]
     Dosage: TRANSPLACENTARY
     Route: 064

REACTIONS (4)
  - CAESAREAN SECTION [None]
  - CHOANAL ATRESIA [None]
  - CYANOSIS [None]
  - MATERNAL DRUGS AFFECTING FOETUS [None]
